FAERS Safety Report 22950700 (Version 2)
Quarter: 2023Q4

REPORT INFORMATION
  Report Type: Spontaneous
  Country: GB (occurrence: GB)
  Receive Date: 20230916
  Receipt Date: 20231016
  Transmission Date: 20240109
  Serious: Yes (Hospitalization, Other)
  Sender: FDA-Public Use
  Company Number: GB-ABBVIE-4726278

PATIENT
  Age: 72 Year
  Sex: Female

DRUGS (27)
  1. PRAMIPEXOLE [Suspect]
     Active Substance: PRAMIPEXOLE
     Indication: Product used for unknown indication
     Dosage: 1.57 MILLIGRAM
     Route: 050
  2. PRAMIPEXOLE [Suspect]
     Active Substance: PRAMIPEXOLE
     Dosage: 3.9 MILLIGRAM
     Route: 050
  3. PRAMIPEXOLE [Suspect]
     Active Substance: PRAMIPEXOLE
     Dosage: 2.88 MILLIGRAM
     Route: 050
     Dates: start: 20230826
  4. CARBIDOPA\LEVODOPA [Suspect]
     Active Substance: CARBIDOPA\LEVODOPA
     Indication: Parkinson^s disease
     Dosage: DUODOPA 20MG/5MG; MD:10.0 MLS, CR:2.1 ML/HR, ED:2.5ML; ;
     Route: 050
  5. CARBIDOPA\LEVODOPA [Suspect]
     Active Substance: CARBIDOPA\LEVODOPA
     Dosage: MD:10.0 MLS, CR:2.3 ML/HR, ED:3.0 ML, DOSE INCREASED; ;
     Route: 050
     Dates: start: 2023, end: 2023
  6. CARBIDOPA\LEVODOPA [Suspect]
     Active Substance: CARBIDOPA\LEVODOPA
     Dosage: MD: 11.5, CR: 4.7, ED: 4.5; ;
     Route: 050
     Dates: start: 2023, end: 2023
  7. CARBIDOPA\LEVODOPA [Suspect]
     Active Substance: CARBIDOPA\LEVODOPA
     Dosage: MD: 11.0 MLS; CR: 4.0 ML/HR AND ED: 4.0 ML; ;
     Route: 050
     Dates: start: 2023, end: 2023
  8. CARBIDOPA\LEVODOPA [Suspect]
     Active Substance: CARBIDOPA\LEVODOPA
     Dosage: MD: 10.5, ED: 3.5, CR: 3.2, 20MGS/5MGS; ;
     Route: 050
     Dates: start: 2023, end: 2023
  9. CARBIDOPA\LEVODOPA [Suspect]
     Active Substance: CARBIDOPA\LEVODOPA
     Dosage: MD: 11.5MLS, CR: 4.5 ML/HR, ED:4.5ML,20MG/5MG; ;
     Route: 050
     Dates: start: 2023, end: 2023
  10. CARBIDOPA\LEVODOPA [Suspect]
     Active Substance: CARBIDOPA\LEVODOPA
     Dosage: DUODOPA 20MG/5MG; MD:10.0 MLS, CR:2.1 ML/HR, ED:2.5ML; ;
     Route: 050
     Dates: end: 2023
  11. CARBIDOPA\LEVODOPA [Suspect]
     Active Substance: CARBIDOPA\LEVODOPA
     Dosage: DUODOPA: 08:00 - 22:00HRS, CURRENT RATE 4.5MLS/HR, MORNING DOSE 11.5MLS, BOLUS 4.5MLS
     Route: 050
     Dates: start: 2023, end: 2023
  12. CARBIDOPA\LEVODOPA [Suspect]
     Active Substance: CARBIDOPA\LEVODOPA
     Dosage: MORNING DOSE INCREASED TO 11.3ML, CONTINUOUS DOSE INCREASED TO 4.3MLS/HR AND EXTRA DOSE INCREASE
     Route: 050
     Dates: start: 2023
  13. APOMORPHINE [Concomitant]
     Active Substance: APOMORPHINE
     Indication: Product used for unknown indication
     Dosage: DOSE DECREASEDEND DATE- 2023.; ;
     Route: 065
  14. GABAPENTIN [Concomitant]
     Active Substance: GABAPENTIN
     Indication: Product used for unknown indication
     Dosage: 200 MILLIGRAM
     Route: 050
  15. LANSOPRAZOLE [Concomitant]
     Active Substance: LANSOPRAZOLE
     Indication: Product used for unknown indication
     Dosage: UNK
     Route: 050
  16. BENSERAZIDE HYDROCHLORIDE\LEVODOPA [Concomitant]
     Active Substance: BENSERAZIDE HYDROCHLORIDE\LEVODOPA
     Indication: Product used for unknown indication
     Dosage: 62.5MG X 2
     Route: 050
  17. BENSERAZIDE HYDROCHLORIDE\LEVODOPA [Concomitant]
     Active Substance: BENSERAZIDE HYDROCHLORIDE\LEVODOPA
     Dosage: 62.5MG X 21 IN MORNING AS REQUIRED MAX 3 X DAILY
     Route: 050
  18. BENSERAZIDE HYDROCHLORIDE\LEVODOPA [Concomitant]
     Active Substance: BENSERAZIDE HYDROCHLORIDE\LEVODOPA
     Dosage: 12.5/50
     Route: 050
  19. MIRABEGRON [Concomitant]
     Active Substance: MIRABEGRON
     Indication: Product used for unknown indication
     Dosage: 100 MILLIGRAM
     Route: 050
  20. RASAGILINE [Concomitant]
     Active Substance: RASAGILINE
     Indication: Product used for unknown indication
     Dosage: 1 MILLIGRAM
     Route: 050
  21. SULFAMETHOXAZOLE\TRIMETHOPRIM [Concomitant]
     Active Substance: SULFAMETHOXAZOLE\TRIMETHOPRIM
     Indication: Prophylaxis
     Dosage: UNK
     Route: 050
  22. SINEMET [Concomitant]
     Active Substance: CARBIDOPA\LEVODOPA
     Indication: Product used for unknown indication
     Dosage: CR, 25/100MG;
     Route: 050
  23. SINEMET [Concomitant]
     Active Substance: CARBIDOPA\LEVODOPA
     Dosage: 25/100MG
     Route: 050
  24. SINEMET [Concomitant]
     Active Substance: CARBIDOPA\LEVODOPA
     Dosage: 125 MILLIGRAM, IN THE MORNING
     Route: 050
  25. SINEMET CR [Concomitant]
     Active Substance: CARBIDOPA\LEVODOPA
     Indication: Product used for unknown indication
     Dosage: 25/100 MG
     Route: 050
  26. SINEMET CR [Concomitant]
     Active Substance: CARBIDOPA\LEVODOPA
     Dosage: HALF, 12.5/50MGTWO TABLETS AT NIGHT
     Route: 050
  27. SINEMET CR [Concomitant]
     Active Substance: CARBIDOPA\LEVODOPA
     Dosage: HALF, 12.5/50MG
     Route: 050

REACTIONS (21)
  - Parkinson^s disease [Unknown]
  - Anxiety [Not Recovered/Not Resolved]
  - Blood pressure decreased [Unknown]
  - Balance disorder [Unknown]
  - Constipation [Recovered/Resolved]
  - Diarrhoea [Unknown]
  - Dyskinesia [Recovered/Resolved]
  - Fall [Unknown]
  - Formication [Unknown]
  - Freezing phenomenon [Unknown]
  - Fear of falling [Unknown]
  - Gait disturbance [Not Recovered/Not Resolved]
  - Hospitalisation [Unknown]
  - Joint range of motion decreased [Unknown]
  - Muscle rigidity [Unknown]
  - Stoma site hypergranulation [Not Recovered/Not Resolved]
  - Tremor [Unknown]
  - Mobility decreased [Unknown]
  - Weight decreased [Not Recovered/Not Resolved]
  - Device issue [Unknown]
  - Therapeutic product effect incomplete [Unknown]

NARRATIVE: CASE EVENT DATE: 20230101
